FAERS Safety Report 26100123 (Version 1)
Quarter: 2025Q4

REPORT INFORMATION
  Report Type: Report from Study
  Country: EU (occurrence: EU)
  Receive Date: 20251128
  Receipt Date: 20251128
  Transmission Date: 20260117
  Serious: Yes (Hospitalization)
  Sender: TAKEDA
  Company Number: EU-TAKEDA-2025TUS104994

PATIENT
  Age: 68 Year
  Sex: Female

DRUGS (16)
  1. TEDUGLUTIDE [Suspect]
     Active Substance: TEDUGLUTIDE
     Indication: Short-bowel syndrome
     Dosage: 1.1 MILLIGRAM, QD
     Dates: start: 20171030
  2. TEDUGLUTIDE [Suspect]
     Active Substance: TEDUGLUTIDE
  3. TEDUGLUTIDE [Suspect]
     Active Substance: TEDUGLUTIDE
  4. TEDUGLUTIDE [Suspect]
     Active Substance: TEDUGLUTIDE
  5. PRAMIPEXOLE [Concomitant]
     Active Substance: PRAMIPEXOLE
     Indication: Restless legs syndrome
     Dosage: 0.18 MILLIGRAM, BID
  6. ALBUTEROL [Concomitant]
     Active Substance: ALBUTEROL
     Indication: Asthma
     Dosage: 0.2 MILLIGRAM, BID
  7. NASONEX [Concomitant]
     Active Substance: MOMETASONE FUROATE
     Dosage: UNK UNK, QD
  8. Teofyllin [Concomitant]
     Indication: Asthma
     Dosage: 300 MILLIGRAM, BID
  9. NEXIUM [Concomitant]
     Active Substance: ESOMEPRAZOLE MAGNESIUM
     Indication: Oesophagitis
     Dosage: 40 MILLIGRAM, QD
     Dates: start: 20240524
  10. METOPROLOL [Concomitant]
     Active Substance: METOPROLOL
     Indication: Sinus node dysfunction
     Dosage: 100 MILLIGRAM, BID
     Dates: start: 202408
  11. POTASSIUM CHLORIDE [Concomitant]
     Active Substance: POTASSIUM CHLORIDE
     Indication: Short-bowel syndrome
     Dosage: 750 MILLIGRAM, TID
     Dates: start: 202408
  12. Furix [Concomitant]
     Indication: Asthma
     Dosage: 40 MILLIGRAM, QD
     Dates: start: 202407
  13. CALCIUM CARBONATE\CHOLECALCIFEROL [Concomitant]
     Active Substance: CALCIUM CARBONATE\CHOLECALCIFEROL
     Indication: Short-bowel syndrome
     Dosage: 500 MILLIGRAM, BID
     Dates: start: 202408
  14. VITAMIN B12 [Concomitant]
     Active Substance: CYANOCOBALAMIN
     Indication: Short-bowel syndrome
     Dosage: 1 MILLIGRAM
  15. ZOPICLONE [Concomitant]
     Active Substance: ZOPICLONE
     Indication: Sleep disorder
     Dosage: 7.5 MILLIGRAM, QD
     Dates: start: 202502
  16. MENAQUINONE 6 [Concomitant]
     Active Substance: MENAQUINONE 6
     Indication: Short-bowel syndrome
     Dosage: 75 MICROGRAM, QD
     Dates: start: 20250509

REACTIONS (1)
  - Pelvic pain [Recovered/Resolved]

NARRATIVE: CASE EVENT DATE: 20250626
